FAERS Safety Report 10081219 (Version 2)
Quarter: 2014Q2

REPORT INFORMATION
  Report Type: Spontaneous
  Country: US (occurrence: US)
  Receive Date: 20140416
  Receipt Date: 20140501
  Transmission Date: 20141212
  Serious: No
  Sender: FDA-Public Use
  Company Number: US-PFIZER INC-2014103673

PATIENT
  Age: 63 Year
  Sex: Female
  Weight: 114 kg

DRUGS (5)
  1. CHANTIX [Suspect]
     Indication: SMOKING CESSATION THERAPY
     Dosage: UNK
     Dates: start: 2009
  2. CHANTIX [Suspect]
     Dosage: UNK
     Dates: start: 201404
  3. PROZAC [Concomitant]
     Indication: DEPRESSION
     Dosage: 80 MG, DAILY
  4. VITAMIN D [Concomitant]
     Indication: VITAMIN D DECREASED
     Dosage: 55 IU, 2X/MONTH
  5. LIPITOR [Concomitant]
     Indication: BLOOD CHOLESTEROL INCREASED
     Dosage: 40 MG, DAILY

REACTIONS (1)
  - Abnormal dreams [Recovered/Resolved]
